FAERS Safety Report 7063822-7 (Version None)
Quarter: 2010Q4

REPORT INFORMATION
  Report Type: 
  Country: None (occurrence: None)
  Receive Date: 20101026
  Receipt Date: 20100908
  Transmission Date: 20110411
  Serious: No
  Sender: FDA-Public Use
  Company Number: US-ABBOTT-10P-163-0668998-00

PATIENT
  Age: 19 Year
  Sex: Female
  Weight: 74.91 kg

DRUGS (4)
  1. LUPRON DEPOT [Suspect]
     Indication: PRODUCT USED FOR UNKNOWN INDICATION
  2. MULTI-VITAMINS [Concomitant]
     Indication: BLOOD IRON DECREASED
  3. MULTI-VITAMINS [Concomitant]
     Indication: BODY TEMPERATURE DECREASED
  4. MULTI-VITAMINS [Concomitant]
     Indication: HYPOTENSION

REACTIONS (4)
  - FEELING JITTERY [None]
  - HYPOTENSION [None]
  - OVERWEIGHT [None]
  - WEIGHT INCREASED [None]
